FAERS Safety Report 16895357 (Version 1)
Quarter: 2019Q4

REPORT INFORMATION
  Report Type: Spontaneous
  Country: US (occurrence: US)
  Receive Date: 20191008
  Receipt Date: 20191008
  Transmission Date: 20200122
  Serious: No
  Sender: FDA-Public Use
  Company Number: US-INDIVIOR US-INDV-120721-2019

PATIENT
  Age: 40 Year
  Sex: Male

DRUGS (1)
  1. BUPRENORPHINE. [Suspect]
     Active Substance: BUPRENORPHINE
     Indication: DEPRESSION SUICIDAL
     Dosage: UNKNOWN
     Route: 065

REACTIONS (2)
  - Off label use [Unknown]
  - Therapeutic response unexpected [Unknown]
